FAERS Safety Report 16732997 (Version 2)
Quarter: 2019Q3

REPORT INFORMATION
  Report Type: Other
  Country: FR (occurrence: FR)
  Receive Date: 20190823
  Receipt Date: 20190826
  Transmission Date: 20191005
  Serious: Yes (Hospitalization, Other)
  Sender: FDA-Public Use
  Company Number: FR-CELLTRION INC.-2019FR023932

PATIENT

DRUGS (1)
  1. RITUXIMAB (UNKNOWN) [Suspect]
     Active Substance: RITUXIMAB
     Indication: CRYOGLOBULINAEMIA
     Dosage: UNK
     Route: 065

REACTIONS (5)
  - Serum sickness [Unknown]
  - Hypersensitivity [Unknown]
  - Cryoglobulinaemia [Unknown]
  - Product use in unapproved indication [Unknown]
  - Disease recurrence [Unknown]

NARRATIVE: CASE EVENT DATE: 2017
